FAERS Safety Report 21320330 (Version 1)
Quarter: 2022Q3

REPORT INFORMATION
  Report Type: Spontaneous
  Country: US (occurrence: US)
  Receive Date: 20220911
  Receipt Date: 20220911
  Transmission Date: 20221027
  Serious: No
  Sender: FDA-Public Use
  Company Number: US-SANOFI-01268319

PATIENT
  Sex: Female

DRUGS (2)
  1. XYZAL [Suspect]
     Active Substance: LEVOCETIRIZINE DIHYDROCHLORIDE
     Dosage: TOOK 1 PILL THE FIRST TIME
  2. CLONIDINE [Concomitant]
     Active Substance: CLONIDINE
     Indication: Anxiety

REACTIONS (1)
  - Paraesthesia [Unknown]
